FAERS Safety Report 21533964 (Version 1)
Quarter: 2022Q4

REPORT INFORMATION
  Report Type: Spontaneous
  Country: US (occurrence: None)
  Receive Date: 20221031
  Receipt Date: 20221031
  Transmission Date: 20230112
  Serious: Yes (Other)
  Sender: FDA-Public Use
  Company Number: None

PATIENT
  Age: 16 Month
  Sex: Male

DRUGS (1)
  1. HOMEOPATHICS [Suspect]
     Active Substance: HOMEOPATHICS
     Indication: Teething
     Dosage: OTHER STRENGTH : HPUS;?OTHER QUANTITY : 3 TABLET(S);?OTHER FREQUENCY : EVERY HR UPTO 4HRS;?
     Route: 048
     Dates: start: 20221028, end: 20221028

REACTIONS (4)
  - Rash [None]
  - Somnolence [None]
  - Irritability [None]
  - Gait disturbance [None]

NARRATIVE: CASE EVENT DATE: 20221028
